FAERS Safety Report 6041472-9 (Version None)
Quarter: 2009Q1

REPORT INFORMATION
  Report Type: 
  Country: None (occurrence: None)
  Receive Date: 20090116
  Receipt Date: 20081017
  Transmission Date: 20090719
  Serious: No
  Sender: FDA-Public Use
  Company Number: US-BRISTOL-MYERS SQUIBB COMPANY-14374367

PATIENT
  Age: 39 Year
  Sex: Male
  Weight: 86 kg

DRUGS (2)
  1. ABILIFY [Suspect]
     Indication: BIPOLAR DISORDER
     Dosage: (2MG TO 5MG; 5MG TO 10MG; 10MG TO 5MG THEN 5MG TO 7.5MG) DAILY.
  2. LITHIUM CARBONATE [Concomitant]

REACTIONS (3)
  - HEADACHE [None]
  - HYPERGLYCAEMIA [None]
  - INSOMNIA [None]
